FAERS Safety Report 7919441-0 (Version None)
Quarter: 2011Q4

REPORT INFORMATION
  Report Type: 
  Country: None (occurrence: None)
  Receive Date: 20111115
  Receipt Date: 20111111
  Transmission Date: 20120403
  Serious: Yes (Hospitalization)
  Sender: FDA-Public Use
  Company Number: ZYD-11-AE-246

PATIENT
  Age: 79 Year
  Sex: Male

DRUGS (4)
  1. LEVOTHYROXINE SODIUM [Concomitant]
  2. ATENOLOL [Concomitant]
  3. METFORMIN 1000MG TABLET (ZYDUS) [Suspect]
     Indication: TYPE 2 DIABETES MELLITUS
     Dosage: 1000MG-BID-ORAL
     Route: 048
     Dates: start: 20110822, end: 20111110
  4. INSULIN [Concomitant]

REACTIONS (3)
  - MYOCARDIAL INFARCTION [None]
  - DYSPEPSIA [None]
  - DYSGEUSIA [None]
